FAERS Safety Report 5563834-6 (Version None)
Quarter: 2007Q4

REPORT INFORMATION
  Report Type: 
  Country: None (occurrence: None)
  Receive Date: 20071217
  Receipt Date: 20070828
  Transmission Date: 20080405
  Serious: No
  Sender: FDA-Public Use
  Company Number: US-ASTRAZENECA-2007UW20508

PATIENT
  Age: 57 Year
  Sex: Female
  Weight: 74.8 kg

DRUGS (3)
  1. CRESTOR [Suspect]
     Route: 048
  2. ACTOS [Concomitant]
  3. MOBIC [Concomitant]

REACTIONS (2)
  - GLOSSODYNIA [None]
  - ORAL PAIN [None]
